FAERS Safety Report 24541716 (Version 1)
Quarter: 2024Q4

REPORT INFORMATION
  Report Type: Spontaneous
  Country: SK (occurrence: SK)
  Receive Date: 20241023
  Receipt Date: 20241023
  Transmission Date: 20250114
  Serious: Yes (Hospitalization, Other)
  Sender: ALEXION PHARMACEUTICALS
  Company Number: SK-ASTRAZENECA-202410GLO006898SK

PATIENT
  Age: 56 Year

DRUGS (18)
  1. QUETIAPINE [Suspect]
     Active Substance: QUETIAPINE
     Indication: Bipolar disorder
     Dosage: 2 DOSAGE FORM, QD
  2. QUETIAPINE [Suspect]
     Active Substance: QUETIAPINE
     Dosage: 2 DOSAGE FORM, QD
  3. QUETIAPINE [Suspect]
     Active Substance: QUETIAPINE
     Dosage: 2 DOSAGE FORM, QD
  4. QUETIAPINE [Suspect]
     Active Substance: QUETIAPINE
     Dosage: 2 DOSAGE FORM, QD
  5. QUETIAPINE [Suspect]
     Active Substance: QUETIAPINE
     Dosage: 600 MILLIGRAM
  6. QUETIAPINE [Suspect]
     Active Substance: QUETIAPINE
     Dosage: 600 MILLIGRAM
  7. QUETIAPINE [Suspect]
     Active Substance: QUETIAPINE
     Dosage: 600 MILLIGRAM
  8. QUETIAPINE [Suspect]
     Active Substance: QUETIAPINE
     Dosage: 600 MILLIGRAM
  9. VALPROATE SODIUM [Suspect]
     Active Substance: VALPROATE SODIUM
     Indication: Bipolar disorder
     Dosage: 500 MILLIGRAM, QD
  10. VALPROATE SODIUM [Suspect]
     Active Substance: VALPROATE SODIUM
     Dosage: 500 MILLIGRAM, QD
  11. VALPROATE SODIUM [Suspect]
     Active Substance: VALPROATE SODIUM
     Dosage: 1500 MILLIGRAM
  12. VALPROATE SODIUM [Suspect]
     Active Substance: VALPROATE SODIUM
     Dosage: 1500 MILLIGRAM
  13. ATORVASTATIN CALCIUM [Concomitant]
     Active Substance: ATORVASTATIN CALCIUM
  14. ATORVASTATIN CALCIUM [Concomitant]
     Active Substance: ATORVASTATIN CALCIUM
     Route: 065
  15. Lithium carbonate taisho [Concomitant]
     Dosage: UNK
  16. Lithium carbonate taisho [Concomitant]
     Dosage: UNK
     Route: 065
  17. RISPERIDONE [Concomitant]
     Active Substance: RISPERIDONE
  18. RISPERIDONE [Concomitant]
     Active Substance: RISPERIDONE
     Route: 065

REACTIONS (5)
  - Pancreatitis [Recovered/Resolved]
  - Pancreatitis acute [Unknown]
  - Weight increased [Unknown]
  - Adverse drug reaction [Unknown]
  - Blood glucose increased [Recovered/Resolved]
